FAERS Safety Report 6638010-6 (Version None)
Quarter: 2010Q1

REPORT INFORMATION
  Report Type: 
  Country: None (occurrence: None)
  Receive Date: 20100317
  Receipt Date: 20100311
  Transmission Date: 20100710
  Serious: Yes (Hospitalization)
  Sender: FDA-Public Use
  Company Number: DE-ABBOTT-09P-062-0562394-00

PATIENT
  Age: 54 Year
  Sex: Male

DRUGS (16)
  1. ERGENYL TABLETS [Suspect]
     Indication: SCHIZOPHRENIA, PARANOID TYPE
     Route: 048
     Dates: start: 20081016, end: 20081016
  2. ERGENYL TABLETS [Suspect]
     Route: 048
     Dates: start: 20081017, end: 20081019
  3. ERGENYL TABLETS [Suspect]
     Route: 048
     Dates: start: 20081020, end: 20081020
  4. ERGENYL TABLETS [Suspect]
     Route: 048
     Dates: start: 20081021, end: 20081021
  5. ERGENYL TABLETS [Suspect]
     Route: 048
     Dates: start: 20081022, end: 20081026
  6. ERGENYL TABLETS [Suspect]
     Route: 048
     Dates: start: 20081027, end: 20081028
  7. ERGENYL TABLETS [Suspect]
     Route: 048
     Dates: start: 20081029, end: 20081029
  8. HALOPERIDOL [Suspect]
     Indication: SCHIZOPHRENIA, PARANOID TYPE
     Route: 048
     Dates: start: 20080922
  9. TAVOR [Suspect]
     Indication: SCHIZOPHRENIA, PARANOID TYPE
     Route: 048
     Dates: end: 20081019
  10. TAVOR [Suspect]
     Route: 048
     Dates: start: 20081020, end: 20081028
  11. TAVOR [Suspect]
     Route: 048
     Dates: start: 20081029, end: 20081029
  12. TAVOR [Suspect]
     Route: 048
     Dates: start: 20081030, end: 20081031
  13. TAVOR [Suspect]
     Route: 048
     Dates: start: 20081101, end: 20081104
  14. TAVOR [Suspect]
     Route: 048
     Dates: start: 20081105
  15. BISOPROLOL [Concomitant]
     Indication: DRUG USE FOR UNKNOWN INDICATION
     Route: 048
  16. ATACAND [Concomitant]
     Indication: HYPERTENSION
     Route: 048

REACTIONS (3)
  - DRUG INTERACTION [None]
  - ELECTROENCEPHALOGRAM ABNORMAL [None]
  - ENCEPHALOPATHY [None]
